FAERS Safety Report 6213196-6 (Version None)
Quarter: 2009Q2

REPORT INFORMATION
  Report Type: 
  Country: None (occurrence: None)
  Receive Date: 20090602
  Receipt Date: 20090602
  Transmission Date: 20091009
  Serious: Yes (Other)
  Sender: FDA-Public Use
  Company Number: None

PATIENT
  Age: 57 Year
  Sex: Female
  Weight: 53.978 kg

DRUGS (2)
  1. SULFAMETHOXAZOLE AND TRIMETHOPRIM [Suspect]
     Indication: INFLUENZA
     Dosage: ONE TABLET TWICE DAILY PO
     Route: 048
     Dates: start: 20090510, end: 20090516
  2. SULFAMETHOXAZOLE AND TRIMETHOPRIM [Suspect]
     Indication: UPPER RESPIRATORY TRACT INFECTION
     Dosage: ONE TABLET TWICE DAILY PO
     Route: 048
     Dates: start: 20090510, end: 20090516

REACTIONS (7)
  - ARTHRALGIA [None]
  - ATAXIA [None]
  - CONFUSIONAL STATE [None]
  - GENERALISED ERYTHEMA [None]
  - PAIN IN EXTREMITY [None]
  - PRURITUS GENERALISED [None]
  - RASH PAPULAR [None]
